FAERS Safety Report 6956125-X (Version None)
Quarter: 2010Q3

REPORT INFORMATION
  Report Type: 
  Country: None (occurrence: None)
  Receive Date: 20100830
  Receipt Date: 20091021
  Transmission Date: 20110219
  Serious: No
  Sender: FDA-Public Use
  Company Number: US-BAUSCH-2009BL005327

PATIENT
  Age: 53 Year
  Sex: Female

DRUGS (3)
  1. CROMOLYN SODIUM [Suspect]
     Indication: NASAL CONGESTION
     Route: 045
     Dates: start: 20091017, end: 20091017
  2. FLONASE [Concomitant]
  3. TYLENOL /USA/ [Concomitant]

REACTIONS (1)
  - EPISTAXIS [None]
